FAERS Safety Report 5810465-6 (Version None)
Quarter: 2008Q3

REPORT INFORMATION
  Report Type: 
  Country: None (occurrence: None)
  Receive Date: 20080715
  Receipt Date: 20080704
  Transmission Date: 20090109
  Serious: Yes (Hospitalization, Other)
  Sender: FDA-Public Use
  Company Number: FR-PFIZER INC-2008049524

PATIENT
  Sex: Female
  Weight: 46 kg

DRUGS (2)
  1. GENOTONORM [Suspect]
     Indication: GROWTH HORMONE DEFICIENCY
     Route: 058
     Dates: start: 19990626, end: 20080101
  2. LEVOTHYROXINE SODIUM [Concomitant]
     Route: 048

REACTIONS (2)
  - METASTASES TO LUNG [None]
  - METASTASIS [None]
